FAERS Safety Report 4786666-5 (Version None)
Quarter: 2005Q3

REPORT INFORMATION
  Report Type: 
  Country: None (occurrence: None)
  Receive Date: 20050930
  Receipt Date: 20050913
  Transmission Date: 20060218
  Serious: Yes (Other)
  Sender: FDA-Public Use
  Company Number: USA0509108001

PATIENT
  Age: 12 Year

DRUGS (1)
  1. CYMBALTA [Suspect]

REACTIONS (1)
  - CEREBROVASCULAR ACCIDENT [None]
